FAERS Safety Report 9648139 (Version 2)
Quarter: 2014Q1

REPORT INFORMATION
  Report Type: Spontaneous
  Country: US (occurrence: US)
  Receive Date: 20131028
  Receipt Date: 20140106
  Transmission Date: 20141002
  Serious: Yes (Hospitalization, Other)
  Sender: FDA-Public Use
  Company Number: PHEH2013US022050

PATIENT
  Sex: Male
  Weight: 108 kg

DRUGS (11)
  1. CLOZARIL [Suspect]
     Indication: SCHIZOPHRENIA, PARANOID TYPE
     Dosage: 3 DF, BID (600MG PER DAY)
     Dates: start: 2006, end: 201303
  2. CLOZARIL [Suspect]
     Indication: PSYCHOTIC DISORDER
     Dosage: UNK
  3. HALDOL [Concomitant]
     Indication: SCHIZOPHRENIA
     Dosage: 75 MG, Q4 WEEKS
     Route: 030
     Dates: start: 2008
  4. HALDOL [Concomitant]
     Indication: PSYCHOTIC DISORDER
     Dosage: 10 MG, UNK
  5. HALDOL [Concomitant]
     Dosage: 125 MG, PRN
     Dates: start: 20130320
  6. COGENTIN [Concomitant]
     Dosage: 1AM
  7. METPROLOL [Concomitant]
     Indication: HYPERTENSION
     Dosage: 25 MG, BID
     Route: 048
     Dates: start: 20110816
  8. METPROLOL [Concomitant]
     Indication: TACHYCARDIA
  9. LITHIUM [Concomitant]
     Indication: AFFECTIVE DISORDER
     Dosage: 600 MG, BID
     Route: 048
     Dates: start: 20130401
  10. BENZOTROPINE [Concomitant]
     Indication: ADVERSE DRUG REACTION
     Dosage: 1 DF, BID
     Route: 048
     Dates: start: 20130702
  11. KLONOPIN [Concomitant]
     Indication: AKATHISIA
     Dosage: 0.5 MG AT MORNING
     Dates: start: 20130925

REACTIONS (17)
  - Psychotic disorder [Not Recovered/Not Resolved]
  - Paranoia [Not Recovered/Not Resolved]
  - Judgement impaired [Not Recovered/Not Resolved]
  - Incoherent [Not Recovered/Not Resolved]
  - Abnormal behaviour [Not Recovered/Not Resolved]
  - Inappropriate affect [Not Recovered/Not Resolved]
  - Insomnia [Not Recovered/Not Resolved]
  - Disorientation [Not Recovered/Not Resolved]
  - Confusional state [Not Recovered/Not Resolved]
  - Anxiety [Not Recovered/Not Resolved]
  - Aggression [Not Recovered/Not Resolved]
  - Agitation [Not Recovered/Not Resolved]
  - Anosognosia [Not Recovered/Not Resolved]
  - Restlessness [Not Recovered/Not Resolved]
  - Injury [Unknown]
  - Musculoskeletal chest pain [Unknown]
  - Blood pressure decreased [Unknown]
